FAERS Safety Report 7877180-9 (Version None)
Quarter: 2011Q4

REPORT INFORMATION
  Report Type: 
  Country: None (occurrence: None)
  Receive Date: 20111031
  Receipt Date: 20111027
  Transmission Date: 20120403
  Serious: Yes (Hospitalization, Other)
  Sender: FDA-Public Use
  Company Number: US-AMGEN-USASP2011044306

PATIENT
  Age: 21 Year
  Sex: Male
  Weight: 124.72 kg

DRUGS (9)
  1. NPLATE [Suspect]
     Indication: EVANS SYNDROME
  2. CORTICOSTEROIDS [Concomitant]
     Indication: IDIOPATHIC THROMBOCYTOPENIC PURPURA
  3. NPLATE [Suspect]
     Indication: IDIOPATHIC THROMBOCYTOPENIC PURPURA
     Dosage: 1 MUG/KG, UNK
     Route: 058
     Dates: start: 20110209
  4. IVIGLOB-EX [Concomitant]
     Indication: IDIOPATHIC THROMBOCYTOPENIC PURPURA
  5. RITUXAN [Concomitant]
     Indication: IDIOPATHIC THROMBOCYTOPENIC PURPURA
     Dosage: 903.8 MG, UNK
  6. TYLENOL (CAPLET) [Concomitant]
     Dosage: 650 MG, UNK
  7. BENADRYL [Concomitant]
     Dosage: 50 MG, UNK
  8. FOLIC ACID [Concomitant]
  9. PENICILLIN V POTASSIUM [Concomitant]

REACTIONS (3)
  - PLATELET COUNT DECREASED [None]
  - TREATMENT NONCOMPLIANCE [None]
  - GASTRITIS [None]
